FAERS Safety Report 11690670 (Version 2)
Quarter: 2015Q4

REPORT INFORMATION
  Report Type: Report from Study
  Country: US (occurrence: US)
  Receive Date: 20151102
  Receipt Date: 20151116
  Transmission Date: 20160304
  Serious: Yes (Death, Hospitalization)
  Sender: FDA-Public Use
  Company Number: US-VERTEX PHARMACEUTICALS-2015-004828

PATIENT
  Sex: Female

DRUGS (6)
  1. ACTIGALL [Concomitant]
     Active Substance: URSODIOL
  2. ENZYMES [Concomitant]
  3. ORKAMBI [Suspect]
     Active Substance: IVACAFTOR\LUMACAFTOR
     Indication: CYSTIC FIBROSIS
     Dosage: 1 DF, SINGLE
     Route: 048
     Dates: start: 20150819, end: 20150819
  4. VITAMINS [Concomitant]
     Active Substance: VITAMINS
  5. HYPERTONIC [Concomitant]
  6. PULMOZYME [Concomitant]
     Active Substance: DORNASE ALFA

REACTIONS (2)
  - Respiratory failure [Fatal]
  - Cystic fibrosis [Fatal]
